FAERS Safety Report 8887320 (Version 1)
Quarter: 2012Q4

REPORT INFORMATION
  Report Type: 
  Country: US (occurrence: US)
  Receive Date: 20121101
  Receipt Date: 20121101
  Transmission Date: 20130627
  Serious: Yes (Other)
  Sender: FDA-Public Use
  Company Number: US-PFIZER INC-2012273321

PATIENT
  Age: 82 Year
  Sex: Female
  Weight: 57.6 kg

DRUGS (3)
  1. LIPITOR [Suspect]
     Indication: HIGH CHOLESTEROL
     Dosage: 40 mg, 1x/day
     Route: 048
  2. LISINOPRIL W/HYDROCHLOROTHIAZIDE [Concomitant]
     Indication: BLOOD PRESSURE HIGH
     Dosage: 20/12.5 mg, x1/day
  3. METFORMIN [Concomitant]
     Indication: DIABETES
     Dosage: 500 mg, 1x/day

REACTIONS (2)
  - Hypertonic bladder [Unknown]
  - Memory impairment [Unknown]
